FAERS Safety Report 10978801 (Version 1)
Quarter: 2015Q2

REPORT INFORMATION
  Report Type: Spontaneous
  Country: US (occurrence: US)
  Receive Date: 20150402
  Receipt Date: 20150402
  Transmission Date: 20150821
  Serious: Yes (Other)
  Sender: FDA-Public Use
  Company Number: US-JNJFOC-20150316774

PATIENT
  Age: 18 Year
  Sex: Male

DRUGS (2)
  1. BENADRYL ALLERGY [Suspect]
     Active Substance: DIPHENHYDRAMINE HYDROCHLORIDE
     Route: 048
  2. BENADRYL ALLERGY [Suspect]
     Active Substance: DIPHENHYDRAMINE HYDROCHLORIDE
     Indication: SLEEP DISORDER THERAPY
     Dosage: 2 TABLETS DAILY EVERY NIGHT
     Route: 048

REACTIONS (3)
  - Product use issue [Unknown]
  - Drug dependence [Unknown]
  - Somnolence [Unknown]
